FAERS Safety Report 8020226-8 (Version None)
Quarter: 2012Q1

REPORT INFORMATION
  Report Type: 
  Country: None (occurrence: None)
  Receive Date: 20120103
  Receipt Date: 20110404
  Transmission Date: 20120608
  Serious: No
  Sender: FDA-Public Use
  Company Number: US-ABBOTT-11P-163-0804389-00

PATIENT
  Sex: Female
  Weight: 53.636 kg

DRUGS (1)
  1. PERINDOPRIL [Suspect]
     Indication: HYPERTENSION
     Dosage: DAILY DOSE: 4 MILLIGRAM(S)
     Route: 065
     Dates: start: 20110304

REACTIONS (5)
  - POLLAKIURIA [None]
  - MEMORY IMPAIRMENT [None]
  - MUSCULOSKELETAL PAIN [None]
  - ALOPECIA [None]
  - RHINORRHOEA [None]
